FAERS Safety Report 5664650-7 (Version None)
Quarter: 2008Q1

REPORT INFORMATION
  Report Type: 
  Country: None (occurrence: None)
  Receive Date: 20080314
  Receipt Date: 20080307
  Transmission Date: 20080703
  Serious: Yes (Life-Threatening, Hospitalization)
  Sender: FDA-Public Use
  Company Number: FR-WYE-G01214808

PATIENT
  Sex: Female

DRUGS (7)
  1. EFFEXOR [Suspect]
     Dosage: UNKNOWN
     Route: 048
     Dates: start: 20070930, end: 20071001
  2. DEROXAT [Suspect]
     Dosage: UNKNOWN
     Route: 048
     Dates: start: 20070930, end: 20071001
  3. AUGMENTIN '125' [Suspect]
     Route: 042
     Dates: start: 20070930, end: 20071001
  4. ACUPAN [Suspect]
     Dosage: 6 DOSE FORMS
     Route: 042
     Dates: start: 20070930
  5. NUBAIN [Suspect]
     Route: 042
     Dates: start: 20070930, end: 20071001
  6. TERCIAN [Suspect]
     Route: 048
     Dates: start: 20070930, end: 20071001
  7. PERFALGAN [Suspect]
     Route: 042
     Dates: start: 20070930

REACTIONS (5)
  - ACCIDENTAL OVERDOSE [None]
  - AGITATION [None]
  - CONFUSIONAL STATE [None]
  - INCORRECT DOSE ADMINISTERED [None]
  - RESPIRATORY DISTRESS [None]
